FAERS Safety Report 21315209 (Version 2)
Quarter: 2022Q4

REPORT INFORMATION
  Report Type: Report from Study
  Country: US (occurrence: US)
  Receive Date: 20220909
  Receipt Date: 20221122
  Transmission Date: 20230113
  Serious: Yes (Death, Other)
  Sender: FDA-Public Use
  Company Number: US-BRISTOL-MYERS SQUIBB COMPANY-2022-103866

PATIENT
  Age: 52 Year
  Sex: Male

DRUGS (1)
  1. ABRAXANE [Suspect]
     Active Substance: PACLITAXEL
     Indication: Cholangiocarcinoma
     Route: 042

REACTIONS (2)
  - Intentional product use issue [Unknown]
  - Malignant neoplasm progression [Fatal]
